FAERS Safety Report 4883905-7 (Version None)
Quarter: 2006Q1

REPORT INFORMATION
  Report Type: 
  Country: None (occurrence: None)
  Receive Date: 20060113
  Receipt Date: 20060110
  Transmission Date: 20060701
  Serious: Yes (Death)
  Sender: FDA-Public Use
  Company Number: 2005-128450-NL

PATIENT
  Age: 75 Year
  Sex: Male

DRUGS (2)
  1. DANAPAROID SODIUM [Suspect]
     Dosage: INTRAVENOUS (NOS)
     Route: 042
     Dates: start: 20040625, end: 20040630
  2. HEPARIN SODIUM [Suspect]
     Dosage: DF, INTRAVENOUS
     Route: 042
     Dates: start: 20040625, end: 20040625

REACTIONS (5)
  - ANAPHYLACTIC SHOCK [None]
  - HAEMATOMA [None]
  - HEPARIN-INDUCED THROMBOCYTOPENIA [None]
  - PROCEDURAL COMPLICATION [None]
  - THROMBOCYTOPENIA [None]
